FAERS Safety Report 4869624-1 (Version None)
Quarter: 2005Q4

REPORT INFORMATION
  Report Type: 
  Country: None (occurrence: None)
  Receive Date: 20051230
  Receipt Date: 20051222
  Transmission Date: 20060501
  Serious: Yes (Other)
  Sender: FDA-Public Use
  Company Number: AU-BRISTOL-MYERS SQUIBB COMPANY-13226519

PATIENT
  Sex: Female

DRUGS (1)
  1. IRBESARTAN AND HYDROCHLOROTHIAZIDE [Suspect]
     Route: 048

REACTIONS (7)
  - ACCIDENTAL EXPOSURE [None]
  - FEELING COLD [None]
  - HYPERHIDROSIS [None]
  - MIGRAINE [None]
  - MOVEMENT DISORDER [None]
  - SALIVA ALTERED [None]
  - VOMITING [None]
